FAERS Safety Report 12713938 (Version 2)
Quarter: 2016Q4

REPORT INFORMATION
  Report Type: Report from Study
  Country: US (occurrence: US)
  Receive Date: 20160905
  Receipt Date: 20161021
  Transmission Date: 20170207
  Serious: No
  Sender: FDA-Public Use
  Company Number: PHEH2016US021806

PATIENT
  Sex: Male

DRUGS (2)
  1. COSENTYX [Suspect]
     Active Substance: SECUKINUMAB
     Indication: PSORIATIC ARTHROPATHY
  2. COSENTYX [Suspect]
     Active Substance: SECUKINUMAB
     Indication: PSORIASIS
     Route: 065

REACTIONS (1)
  - Drug effect incomplete [Unknown]
